FAERS Safety Report 14731250 (Version 3)
Quarter: 2018Q2

REPORT INFORMATION
  Report Type: Report from Study
  Country: None (occurrence: RO)
  Receive Date: 20180406
  Receipt Date: 20180514
  Transmission Date: 20180711
  Serious: Yes (Hospitalization, Other)
  Sender: FDA-Public Use
  Company Number: RO-ABBVIE-18K-135-2313177-00

PATIENT
  Age: 68 Year
  Sex: Female

DRUGS (3)
  1. SULPHASALAZINE [Concomitant]
     Active Substance: SULFASALAZINE
     Indication: RHEUMATOID ARTHRITIS
     Route: 048
     Dates: start: 20090501, end: 20180228
  2. HUMIRA [Suspect]
     Active Substance: ADALIMUMAB
     Indication: RHEUMATOID ARTHRITIS
     Route: 058
     Dates: start: 20150112, end: 20180228
  3. DICLOFENAC [Concomitant]
     Active Substance: DICLOFENAC
     Indication: RHEUMATOID ARTHRITIS
     Route: 048
     Dates: start: 20150810, end: 20180228

REACTIONS (3)
  - Malaise [Not Recovered/Not Resolved]
  - Large intestinal ulcer [Recovering/Resolving]
  - Colon neoplasm [Recovering/Resolving]

NARRATIVE: CASE EVENT DATE: 20180306
